FAERS Safety Report 5444194-8 (Version None)
Quarter: 2007Q3

REPORT INFORMATION
  Report Type: 
  Country: None (occurrence: None)
  Receive Date: 20070906
  Receipt Date: 20070824
  Transmission Date: 20080115
  Serious: Yes (Hospitalization)
  Sender: FDA-Public Use
  Company Number: US-TYCO HEALTHCARE/MALLINCKRODT-T200700980

PATIENT

DRUGS (10)
  1. LORTAB [Suspect]
     Indication: MUSCULOSKELETAL PAIN
     Dosage: UNK, PRN
     Dates: start: 20070724
  2. RUFINAMIDE [Suspect]
     Indication: EPILEPSY
     Dates: start: 20070207, end: 20070529
  3. RUFINAMIDE [Suspect]
     Dosage: 3200 MG, (8 IN ONE DAY)
     Route: 048
     Dates: start: 20070530, end: 20070724
  4. RUFINAMIDE [Suspect]
     Dosage: 4000 MG, (10 IN ONE DAY)
     Route: 048
     Dates: start: 20070725
  5. BACTRIM [Suspect]
     Indication: URINARY TRACT INFECTION
     Dosage: UNK, UNK
     Route: 048
     Dates: start: 20070721, end: 20070724
  6. LEVAQUIN [Suspect]
     Route: 048
     Dates: start: 20070706, end: 20070720
  7. LEVETIRACETAM [Concomitant]
     Route: 048
     Dates: start: 20000101
  8. LAMOTRIGINE [Concomitant]
     Route: 048
  9. BACTROBAN [Concomitant]
     Route: 061
     Dates: start: 20070302
  10. NEURONTIN [Concomitant]

REACTIONS (1)
  - WHITE BLOOD CELL COUNT DECREASED [None]
